FAERS Safety Report 9626182 (Version 1)
Quarter: 2013Q4

REPORT INFORMATION
  Report Type: Spontaneous
  Country: FR (occurrence: FR)
  Receive Date: 20131016
  Receipt Date: 20131016
  Transmission Date: 20140711
  Serious: Yes (Hospitalization)
  Sender: FDA-Public Use
  Company Number: FR-ABBVIE-13P-056-1156339-00

PATIENT
  Age: 43 Year
  Sex: Female
  Weight: 76 kg

DRUGS (9)
  1. NORVIR [Suspect]
     Indication: HIV INFECTION
     Dates: start: 20080117
  2. REYATAZ [Suspect]
     Indication: HIV INFECTION
     Route: 048
     Dates: start: 20080117
  3. KIVEXA [Suspect]
     Indication: HIV INFECTION
     Dosage: DF 600/300MG
     Route: 048
     Dates: start: 20080117
  4. KIVEXA [Suspect]
     Route: 048
     Dates: start: 20080117
  5. MAGNE B6 [Concomitant]
     Indication: PRODUCT USED FOR UNKNOWN INDICATION
     Dosage: DF 100/10
  6. UVEDOSE [Concomitant]
     Indication: PRODUCT USED FOR UNKNOWN INDICATION
  7. METFORMINE [Concomitant]
     Indication: PRODUCT USED FOR UNKNOWN INDICATION
  8. METFORMINE [Concomitant]
  9. DOLIPRANE [Concomitant]
     Indication: PRODUCT USED FOR UNKNOWN INDICATION

REACTIONS (5)
  - Muscular weakness [Recovered/Resolved]
  - Myalgia [Recovered/Resolved]
  - Arthralgia [Recovered/Resolved]
  - Vertigo [Recovered/Resolved]
  - Asthenia [Recovered/Resolved]
